FAERS Safety Report 5961955-7 (Version None)
Quarter: 2008Q4

REPORT INFORMATION
  Report Type: 
  Country: None (occurrence: None)
  Receive Date: 20081121
  Receipt Date: 20081111
  Transmission Date: 20090506
  Serious: Yes (Other)
  Sender: FDA-Public Use
  Company Number: US-JNJFOC-20080701233

PATIENT
  Age: 54 Year
  Sex: Female
  Weight: 58.97 kg

DRUGS (5)
  1. IMODIUM A-D [Suspect]
     Route: 048
  2. IMODIUM A-D [Suspect]
     Indication: DIARRHOEA
     Dosage: 1 DOSE AT 5PM AND 1 DOSE AT 7PM
     Route: 048
  3. NORVASC [Concomitant]
     Indication: HYPERTENSION
  4. HYZAAR [Concomitant]
     Indication: HYPERTENSION
  5. XANAX [Concomitant]
     Indication: ANXIETY

REACTIONS (3)
  - PRODUCT CONTAMINATION [None]
  - TONGUE DISCOLOURATION [None]
  - TOOTH DISCOLOURATION [None]
